FAERS Safety Report 8357718 (Version 4)
Quarter: 2013Q1

REPORT INFORMATION
  Report Type: Spontaneous
  Country: FR (occurrence: FR)
  Receive Date: 20120127
  Receipt Date: 20130213
  Transmission Date: 20140127
  Serious: Yes (Other)
  Sender: FDA-Public Use
  Company Number: FR-PFIZER INC-2011218720

PATIENT
  Age: 86 Year
  Sex: Male

DRUGS (7)
  1. CORDARONE [Suspect]
     Indication: ATRIAL FIBRILLATION
     Dosage: 200 MG DAILY FIVE TIMES PER WEEK
     Route: 048
     Dates: start: 2004, end: 2008
  2. CORDARONE [Suspect]
     Dosage: 200 MG DAILY FOUR TIMES PER WEEK
     Route: 048
  3. CORDARONE [Suspect]
     Dosage: 200 MG DAILY THREE TIMES PER WEEK
     Route: 048
     Dates: start: 201107, end: 20110830
  4. COVERSYL [Concomitant]
     Dosage: UNK
     Dates: start: 2003, end: 2011
  5. EZETROL [Concomitant]
     Dosage: UNK
     Dates: start: 2008, end: 2011
  6. KARDEGIC [Concomitant]
     Dosage: UNK
     Dates: start: 2005
  7. TOCO [Concomitant]
     Dosage: UNK
     Dates: start: 2008

REACTIONS (5)
  - Hepatitis [Recovered/Resolved]
  - Jaundice [Recovered/Resolved]
  - Fatigue [Recovered/Resolved]
  - Weight decreased [Recovered/Resolved]
  - Encephalopathy [Recovered/Resolved]
